FAERS Safety Report 18929642 (Version 1)
Quarter: 2021Q1

REPORT INFORMATION
  Report Type: Spontaneous
  Country: US (occurrence: US)
  Receive Date: 20210223
  Receipt Date: 20210223
  Transmission Date: 20210420
  Serious: Yes (Hospitalization)
  Sender: FDA-Public Use
  Company Number: US-ALLERGAN-2105745US

PATIENT
  Sex: Female

DRUGS (4)
  1. BOTOX [Suspect]
     Active Substance: ONABOTULINUMTOXINA
     Dosage: UNK, SINGLE
     Dates: start: 20201009, end: 20201009
  2. UNSPECIFIED STOMACH MEDICATION [Concomitant]
     Indication: CONSTIPATION
  3. BOTOX [Suspect]
     Active Substance: ONABOTULINUMTOXINA
     Indication: POST-TRAUMATIC HEADACHE
     Dosage: UNK, SINGLE
     Dates: start: 20210108, end: 20210108
  4. AIMOVIG [Concomitant]
     Active Substance: ERENUMAB-AOOE
     Indication: HEADACHE
     Dosage: UNK UNK, Q MONTH

REACTIONS (3)
  - Off label use [Unknown]
  - Kidney infection [Unknown]
  - Urinary tract infection [Recovered/Resolved]

NARRATIVE: CASE EVENT DATE: 20201111
